FAERS Safety Report 15454045 (Version 1)
Quarter: 2018Q4

REPORT INFORMATION
  Report Type: Spontaneous
  Country: US (occurrence: US)
  Receive Date: 20181002
  Receipt Date: 20181002
  Transmission Date: 20190204
  Serious: No
  Sender: FDA-Public Use
  Company Number: US-TORRENT-00005649

PATIENT
  Age: 65 Year
  Sex: Female
  Weight: 90 kg

DRUGS (4)
  1. ZOLPIDEM TARTRATE TABLET [Suspect]
     Active Substance: ZOLPIDEM TARTRATE
     Indication: INSOMNIA
     Dosage: HS, AT NIGHT
     Dates: start: 20171207
  2. ZOLOFT [Concomitant]
     Active Substance: SERTRALINE HYDROCHLORIDE
     Indication: PRODUCT USED FOR UNKNOWN INDICATION
     Dosage: PRN, 2 WEEKS/EVERY 6?MONTHS
  3. LISINOPRIL. [Concomitant]
     Active Substance: LISINOPRIL
     Indication: HYPERTENSION
     Dosage: OD
     Dates: start: 201709
  4. DEXTROAMPHETAMINE SULFATE. [Concomitant]
     Active Substance: DEXTROAMPHETAMINE SULFATE
     Indication: SOMNOLENCE
     Dosage: OD
     Route: 048
     Dates: start: 1999

REACTIONS (2)
  - Drug effect variable [Unknown]
  - Product quality issue [Unknown]

NARRATIVE: CASE EVENT DATE: 20171207
